FAERS Safety Report 25184776 (Version 1)
Quarter: 2025Q2

REPORT INFORMATION
  Report Type: Spontaneous
  Country: DE (occurrence: DE)
  Receive Date: 20250410
  Receipt Date: 20250410
  Transmission Date: 20250716
  Serious: Yes (Other)
  Sender: JOHNSON AND JOHNSON
  Company Number: DE-JNJFOC-20250403442

PATIENT
  Sex: Male

DRUGS (2)
  1. SPRAVATO [Suspect]
     Active Substance: ESKETAMINE
     Indication: Product used for unknown indication
     Route: 045
  2. BUPROPION [Concomitant]
     Active Substance: BUPROPION

REACTIONS (7)
  - Blood pressure increased [Recovered/Resolved]
  - Bradycardia [Unknown]
  - Nausea [Unknown]
  - Tremor [Unknown]
  - Headache [Unknown]
  - Dizziness [Recovered/Resolved]
  - Blood pressure decreased [Unknown]
